FAERS Safety Report 15098993 (Version 1)
Quarter: 2018Q2

REPORT INFORMATION
  Report Type: Spontaneous
  Country: US (occurrence: US)
  Receive Date: 20180611
  Receipt Date: 20180611
  Transmission Date: 20180711
  Serious: Yes (Disabling)
  Sender: FDA-Public Use
  Company Number: None

PATIENT
  Age: 69 Year
  Sex: Male
  Weight: 88.65 kg

DRUGS (9)
  1. ROSUVASTATIN CALCIUM 10MG [Suspect]
     Active Substance: ROSUVASTATIN CALCIUM
     Indication: BLOOD CHOLESTEROL INCREASED
     Dosage: ?          QUANTITY:1 TABLET(S);?
     Route: 048
     Dates: start: 20180312, end: 20180610
  2. VITAMIN C [Concomitant]
     Active Substance: ASCORBIC ACID
  3. OMEPRAZOLE DR [Concomitant]
     Active Substance: OMEPRAZOLE
  4. DICLOFENAC SOD [Concomitant]
     Active Substance: DICLOFENAC SODIUM
  5. VITAMIN D [Concomitant]
     Active Substance: CHOLECALCIFEROL
  6. VITAMIN B [Concomitant]
     Active Substance: VITAMIN B
  7. AMLODIPINE-BENAZ [Concomitant]
  8. CLONAZEPAM. [Concomitant]
     Active Substance: CLONAZEPAM
  9. TRZADONE [Concomitant]

REACTIONS (2)
  - Myalgia [None]
  - Insomnia [None]

NARRATIVE: CASE EVENT DATE: 20180401
